FAERS Safety Report 6042377-X (Version None)
Quarter: 2009Q1

REPORT INFORMATION
  Report Type: 
  Country: None (occurrence: None)
  Receive Date: 20090116
  Receipt Date: 20090109
  Transmission Date: 20090719
  Serious: Yes (Hospitalization)
  Sender: FDA-Public Use
  Company Number: DE-SANOFI-SYNTHELABO-A04200900019

PATIENT
  Age: 70 Year
  Sex: Male
  Weight: 91.5 kg

DRUGS (15)
  1. NEORECORMON [Concomitant]
     Indication: ANAEMIA
     Dosage: 4000 IU 2X MONTHLY
     Route: 058
  2. MOXONIDINE [Concomitant]
     Indication: HYPERTENSION
     Route: 048
  3. XIPAMIDE [Interacting]
     Indication: HYPERTENSION
     Route: 048
     Dates: start: 20080625
  4. TOREM [Interacting]
     Indication: HYPERTENSION
     Route: 048
  5. PANTOZOL [Interacting]
     Indication: HELICOBACTER GASTRITIS
     Route: 048
  6. FLUVASTATIN [Interacting]
     Indication: HYPERCHOLESTEROLAEMIA
     Route: 048
  7. EINSALPHA [Interacting]
     Indication: HYPERPARATHYROIDISM SECONDARY
     Route: 048
     Dates: start: 20080520
  8. EBRANTIL [Interacting]
     Indication: HYPERTENSION
     Route: 048
  9. DIOVANE [Interacting]
     Indication: HYPERTENSION
     Route: 048
  10. DIGITOXIN TAB [Interacting]
     Indication: CARDIAC FAILURE
     Route: 048
     Dates: start: 20080625, end: 20080720
  11. CARVEDILOL [Interacting]
     Indication: HYPERTENSION
     Route: 048
  12. ACETYLSALICYLIC ACID SRT [Interacting]
     Indication: PROPHYLAXIS
     Route: 048
     Dates: start: 20000101
  13. ALLOPURINOL [Interacting]
     Indication: HYPERURICAEMIA
     Route: 048
  14. ACETOLYT [Interacting]
     Indication: ACIDOSIS
     Dosage: 2500 MG
     Route: 048
     Dates: end: 20080720
  15. PLAVIX [Suspect]
     Indication: PROPHYLAXIS
     Route: 048
     Dates: start: 20060401, end: 20080720

REACTIONS (6)
  - CARDIOACTIVE DRUG LEVEL INCREASED [None]
  - DRUG INTERACTION [None]
  - GENERAL PHYSICAL HEALTH DETERIORATION [None]
  - MALAISE [None]
  - NAUSEA [None]
  - RENAL FAILURE CHRONIC [None]
